FAERS Safety Report 19514588 (Version 3)
Quarter: 2021Q4

REPORT INFORMATION
  Report Type: Spontaneous
  Country: US (occurrence: US)
  Receive Date: 20210709
  Receipt Date: 20211110
  Transmission Date: 20220303
  Serious: Yes (Other)
  Sender: FDA-Public Use
  Company Number: US-GILEAD-2021-0539528

PATIENT
  Age: 64 Year
  Sex: Female

DRUGS (5)
  1. VIREAD [Suspect]
     Active Substance: TENOFOVIR DISOPROXIL FUMARATE
     Indication: HIV infection
     Dosage: UNK
     Route: 048
     Dates: start: 200812, end: 201701
  2. VIREAD [Suspect]
     Active Substance: TENOFOVIR DISOPROXIL FUMARATE
     Dosage: UNK
     Route: 065
     Dates: start: 20081229, end: 20150424
  3. TRUVADA [Suspect]
     Active Substance: EMTRICITABINE\TENOFOVIR DISOPROXIL FUMARATE
     Indication: HIV infection
     Dosage: UNK
     Route: 048
     Dates: start: 200812, end: 201701
  4. TRUVADA [Suspect]
     Active Substance: EMTRICITABINE\TENOFOVIR DISOPROXIL FUMARATE
     Dosage: UNK
     Route: 065
     Dates: start: 20150430, end: 20170124
  5. DESCOVY [Concomitant]
     Active Substance: EMTRICITABINE\TENOFOVIR ALAFENAMIDE FUMARATE

REACTIONS (11)
  - Osteoporosis [Not Recovered/Not Resolved]
  - Multiple fractures [Unknown]
  - Osteopenia [Not Recovered/Not Resolved]
  - Emotional distress [Unknown]
  - Anhedonia [Unknown]
  - Forearm fracture [Recovered/Resolved]
  - Wrist fracture [Recovered/Resolved]
  - Anxiety [Unknown]
  - Pain [Unknown]
  - Bone density decreased [Unknown]
  - Blood creatinine increased [Unknown]

NARRATIVE: CASE EVENT DATE: 20131023
